FAERS Safety Report 10677812 (Version 1)
Quarter: 2014Q4

REPORT INFORMATION
  Report Type: Spontaneous
  Country: VN (occurrence: VN)
  Receive Date: 20141229
  Receipt Date: 20141229
  Transmission Date: 20150529
  Serious: Yes (Death)
  Sender: FDA-Public Use
  Company Number: VN-009507513-1412VNM011233

PATIENT
  Age: 56 Year
  Sex: Female

DRUGS (1)
  1. COZAAR [Suspect]
     Active Substance: LOSARTAN POTASSIUM
     Indication: HYPERTENSION
     Dosage: 1 DF, QD
     Route: 048
     Dates: start: 20140422, end: 201407

REACTIONS (1)
  - Cardiac disorder [Fatal]

NARRATIVE: CASE EVENT DATE: 2014
